FAERS Safety Report 4790874-7 (Version None)
Quarter: 2005Q3

REPORT INFORMATION
  Report Type: 
  Country: None (occurrence: None)
  Receive Date: 20050914
  Receipt Date: 20040819
  Transmission Date: 20060218
  Serious: Yes (Death)
  Sender: FDA-Public Use
  Company Number: 163-20785-04080438

PATIENT
  Age: 77 Year
  Sex: Female

DRUGS (11)
  1. THALOMID [Suspect]
     Indication: MULTIPLE MYELOMA
     Dosage: 50 MG, QD, ORAL; 200 MG, QD, ORAL
     Route: 048
     Dates: start: 20040428, end: 20040518
  2. THALOMID [Suspect]
     Indication: MULTIPLE MYELOMA
     Dosage: 50 MG, QD, ORAL; 200 MG, QD, ORAL
     Route: 048
     Dates: start: 20040501, end: 20040704
  3. AREDIA [Concomitant]
  4. PROCRIT (ERTHROPOIETIN) (UNKNOWN) [Concomitant]
  5. SYNTHROID [Concomitant]
  6. CARDIZEM (DILTIAZEM HYDROCHLORIDE) (UNKNOWN) [Concomitant]
  7. PRILOSEC (OMEPRAZOLE) (UNKNOWN) [Concomitant]
  8. STOOL SOFTENER (DOCUSATE SODIUM) [Concomitant]
  9. IBUPROFEN [Concomitant]
  10. TYLENOL PM (TYLENOL PM) [Concomitant]
  11. CATEPRES (CLONIDINE) [Concomitant]

REACTIONS (8)
  - ASTHENIA [None]
  - CONSTIPATION [None]
  - DEATH [None]
  - DISEASE PROGRESSION [None]
  - LETHARGY [None]
  - NAUSEA [None]
  - SOMNOLENCE [None]
  - VOMITING [None]
